FAERS Safety Report 4487109-1 (Version None)
Quarter: 2004Q4

REPORT INFORMATION
  Report Type: 
  Country: None (occurrence: None)
  Receive Date: 20041027
  Receipt Date: 20041014
  Transmission Date: 20050328
  Serious: Yes (Hospitalization)
  Sender: FDA-Public Use
  Company Number: CH-GLAXOSMITHKLINE-B0349212A

PATIENT
  Age: 27 Year
  Sex: Male

DRUGS (2)
  1. AUGMENTIN '125' [Suspect]
     Indication: ERYSIPELAS
     Route: 048
     Dates: start: 20040813, end: 20040817
  2. KETOPROFEN [Suspect]
     Indication: LIGAMENT INJURY
     Dosage: 1U PER DAY
     Route: 061
     Dates: start: 20040801, end: 20040813

REACTIONS (6)
  - APPLICATION SITE DERMATITIS [None]
  - DERMATITIS BULLOUS [None]
  - INFLAMMATION [None]
  - RASH MACULO-PAPULAR [None]
  - SKIN INFLAMMATION [None]
  - TOXIC SKIN ERUPTION [None]
